FAERS Safety Report 14381162 (Version 1)
Quarter: 2018Q1

REPORT INFORMATION
  Report Type: Spontaneous
  Country: FR (occurrence: FR)
  Receive Date: 20180112
  Receipt Date: 20180112
  Transmission Date: 20180509
  Serious: Yes (Hospitalization)
  Sender: FDA-Public Use
  Company Number: FR-SA-2017SA268914

PATIENT
  Age: 25 Year
  Sex: Female

DRUGS (2)
  1. STILNOX [Suspect]
     Active Substance: ZOLPIDEM TARTRATE
     Route: 042
  2. SKENAN [Suspect]
     Active Substance: MORPHINE SULFATE
     Route: 042

REACTIONS (6)
  - Drug diversion [Unknown]
  - Intentional overdose [Unknown]
  - Somnolence [Recovered/Resolved]
  - Tachycardia [Recovered/Resolved]
  - Drug dependence [Unknown]
  - Injection site ulcer [Recovering/Resolving]
